FAERS Safety Report 15058416 (Version 1)
Quarter: 2018Q2

REPORT INFORMATION
  Report Type: Spontaneous
  Country: DE (occurrence: DE)
  Receive Date: 20180625
  Receipt Date: 20180625
  Transmission Date: 20180711
  Serious: Yes (Other)
  Sender: FDA-Public Use
  Company Number: DE-TEVA-2018-DE-911082

PATIENT
  Sex: Female

DRUGS (2)
  1. LACTULOSE-RATIOPHARM SIRUP [Suspect]
     Active Substance: LACTULOSE
     Indication: INTESTINAL ATRESIA
     Dosage: 300 ML DAILY;
     Route: 048
     Dates: start: 2015
  2. LACTULOSE-RATIOPHARM SIRUP [Suspect]
     Active Substance: LACTULOSE
     Indication: INTESTINAL OPERATION

REACTIONS (2)
  - Drug-induced liver injury [Unknown]
  - Liver function test increased [Unknown]
